FAERS Safety Report 11693886 (Version 1)
Quarter: 2015Q4

REPORT INFORMATION
  Report Type: Spontaneous
  Country: US (occurrence: US)
  Receive Date: 20151103
  Receipt Date: 20151103
  Transmission Date: 20160304
  Serious: Yes (Hospitalization, Other)
  Sender: FDA-Public Use
  Company Number: US-SMITH AND NEPHEW, INC-2015SMT00445

PATIENT
  Age: 26 Year
  Sex: Male

DRUGS (6)
  1. REGRANEX [Suspect]
     Active Substance: BECAPLERMIN
     Indication: WOUND
     Dosage: UNK UNK, 1X/DAY
     Route: 061
     Dates: start: 201509
  2. ZYPREXA [Concomitant]
     Active Substance: OLANZAPINE
  3. BLOOD PRESSURE MEDICATION (NON-SPECIFIC) [Concomitant]
     Indication: BLOOD PRESSURE MEASUREMENT
  4. PEPCID [Concomitant]
     Active Substance: FAMOTIDINE
  5. CELEXA [Concomitant]
     Active Substance: CITALOPRAM HYDROBROMIDE
  6. WARFARIN [Concomitant]
     Active Substance: WARFARIN

REACTIONS (5)
  - Staphylococcal skin infection [Unknown]
  - Wound infection pseudomonas [Not Recovered/Not Resolved]
  - Off label use [Unknown]
  - Sickle cell anaemia with crisis [Recovered/Resolved]
  - Incorrect drug administration duration [Unknown]

NARRATIVE: CASE EVENT DATE: 201509
